FAERS Safety Report 8523982-5 (Version None)
Quarter: 2012Q3

REPORT INFORMATION
  Report Type: 
  Country: None (occurrence: None)
  Receive Date: 20120720
  Receipt Date: 20120711
  Transmission Date: 20120928
  Serious: Yes (Hospitalization, Other)
  Sender: FDA-Public Use
  Company Number: US-ELI_LILLY_AND_COMPANY-US201201007025

PATIENT
  Sex: Female
  Weight: 79.819 kg

DRUGS (7)
  1. FORTEO [Suspect]
     Dosage: 20 UG, QD
     Route: 058
  2. FORTEO [Suspect]
     Indication: OSTEOPOROSIS
     Dosage: 20 UG, QD
     Route: 058
     Dates: start: 20111122
  3. FISH OIL [Concomitant]
  4. FORTEO [Suspect]
     Dosage: 20 UG, QD
     Route: 058
  5. IRON [Concomitant]
     Indication: ANAEMIA
  6. LOSARTAN/HYDROCHLOORTHIAZIDE [Concomitant]
     Indication: HYPERTENSION
  7. CALCIUM [Concomitant]
     Indication: SUPPLEMENTATION THERAPY

REACTIONS (24)
  - PULMONARY EMBOLISM [None]
  - BACK PAIN [None]
  - PARAESTHESIA [None]
  - NAIL DISCOLOURATION [None]
  - METASTASES TO LIVER [None]
  - ABDOMINAL DISTENSION [None]
  - MEMORY IMPAIRMENT [None]
  - MUSCLE SPASMS [None]
  - WEIGHT DECREASED [None]
  - MALAISE [None]
  - PAIN IN EXTREMITY [None]
  - PELVIC PAIN [None]
  - FLUID RETENTION [None]
  - NAIL BED DISORDER [None]
  - THINKING ABNORMAL [None]
  - THROMBOSIS [None]
  - DECREASED APPETITE [None]
  - NEUROPATHY PERIPHERAL [None]
  - PELVIC FRACTURE [None]
  - OEDEMA PERIPHERAL [None]
  - OVARIAN CANCER METASTATIC [None]
  - METASTASES TO PERITONEUM [None]
  - NAUSEA [None]
  - ALOPECIA [None]
